FAERS Safety Report 12742850 (Version 1)
Quarter: 2016Q3

REPORT INFORMATION
  Report Type: Spontaneous
  Country: US (occurrence: US)
  Receive Date: 20160914
  Receipt Date: 20160914
  Transmission Date: 20161109
  Serious: Yes (Disabling)
  Sender: FDA-Public Use
  Company Number: None

PATIENT
  Age: 34 Year
  Sex: Male
  Weight: 85.5 kg

DRUGS (3)
  1. PROPRANOLOL 20MG [Suspect]
     Active Substance: PROPRANOLOL HYDROCHLORIDE
     Indication: TACHYCARDIA
     Route: 048
  2. PROPRANOLOL 20MG [Suspect]
     Active Substance: PROPRANOLOL HYDROCHLORIDE
     Indication: HYPERTENSION
     Route: 048
  3. MEN^S MULTI-VITAMIN [Concomitant]

REACTIONS (2)
  - Eye disorder [None]
  - Muscle spasms [None]

NARRATIVE: CASE EVENT DATE: 20160615
